FAERS Safety Report 9724207 (Version 2)
Quarter: 2014Q1

REPORT INFORMATION
  Report Type: Spontaneous
  Country: US (occurrence: US)
  Receive Date: 20131202
  Receipt Date: 20140307
  Transmission Date: 20141002
  Serious: No
  Sender: FDA-Public Use
  Company Number: US-AMGEN-USASP2013080374

PATIENT
  Age: 38 Year
  Sex: Female
  Weight: 62.59 kg

DRUGS (3)
  1. ENBREL [Suspect]
     Indication: RHEUMATOID ARTHRITIS
     Dosage: 50 MG, QWK
     Route: 065
     Dates: start: 20120620
  2. PREDNISONE [Concomitant]
     Dosage: 2.5 MG, QD FROM 5 MG PER DAY
  3. FLU [Concomitant]

REACTIONS (1)
  - Arthralgia [Not Recovered/Not Resolved]
